FAERS Safety Report 5085274-9 (Version None)
Quarter: 2006Q3

REPORT INFORMATION
  Report Type: 
  Country: None (occurrence: None)
  Receive Date: 20060731
  Receipt Date: 20051215
  Transmission Date: 20061208
  Serious: Yes (Life-Threatening)
  Sender: FDA-Public Use
  Company Number: 200512710BWH

PATIENT
  Age: 44 Year
  Sex: Male

DRUGS (1)
  1. AVELOX [Suspect]
     Dosage: 400 MG, ONCE, ORAL
     Route: 048
     Dates: start: 20051105

REACTIONS (5)
  - ANAPHYLACTIC SHOCK [None]
  - CHEST PAIN [None]
  - DYSPNOEA [None]
  - RASH GENERALISED [None]
  - RESPIRATORY ARREST [None]
